FAERS Safety Report 7511320-6 (Version None)
Quarter: 2011Q2

REPORT INFORMATION
  Report Type: 
  Country: None (occurrence: None)
  Receive Date: 20110531
  Receipt Date: 20110504
  Transmission Date: 20111010
  Serious: Yes (Hospitalization, Other)
  Sender: FDA-Public Use
  Company Number: US-BAYER-201023517NA

PATIENT
  Sex: Female
  Weight: 61.224 kg

DRUGS (12)
  1. MULTI-VITAMIN [Concomitant]
     Dosage: UNK UNK, QD
     Dates: start: 20080101, end: 20100101
  2. ALBUTEROL SULFATE AUTOHALER [Concomitant]
     Indication: ASTHMA
     Dosage: UNK UNK, PRN
  3. FLOVENT [Concomitant]
     Indication: ASTHMA
     Dosage: UNK UNK, PRN
  4. MOTRIN [Concomitant]
     Dosage: UNK UNK, PRN
  5. PROBIOTICS [Concomitant]
  6. YAZ [Suspect]
     Indication: CONTRACEPTION
     Route: 048
     Dates: start: 20060701, end: 20091001
  7. ZITHROMAX [Concomitant]
     Dosage: UNK UNK, PRN
  8. METHOTREXATE [Concomitant]
     Indication: RHEUMATOID ARTHRITIS
     Dosage: UNK
     Dates: start: 20070101
  9. ACETAMINOPHEN [Concomitant]
     Indication: ANALGESIC THERAPY
     Dosage: UNK UNK, PRN
  10. YASMIN [Suspect]
     Indication: PRODUCT USED FOR UNKNOWN INDICATION
     Route: 048
     Dates: start: 20060701, end: 20091001
  11. REMICADE [Concomitant]
     Indication: RHEUMATOID ARTHRITIS
     Dosage: UNK
     Dates: start: 20070101, end: 20100101
  12. ZANTAC [Concomitant]

REACTIONS (5)
  - BARRETT'S OESOPHAGUS [None]
  - CHOLELITHIASIS [None]
  - GALLBLADDER INJURY [None]
  - CHOLECYSTITIS CHRONIC [None]
  - GASTROOESOPHAGEAL REFLUX DISEASE [None]
